FAERS Safety Report 10069891 (Version 1)
Quarter: 2014Q2

REPORT INFORMATION
  Report Type: Spontaneous
  Country: DE (occurrence: DE)
  Receive Date: 20140410
  Receipt Date: 20140410
  Transmission Date: 20141212
  Serious: Yes (Congenital Anomaly, Other)
  Sender: FDA-Public Use
  Company Number: DE-ASTRAZENECA-2014SE23049

PATIENT
  Age: 1 Day
  Sex: Female
  Weight: 4 kg

DRUGS (5)
  1. QUETIAPINE [Suspect]
     Indication: PSYCHOTIC DISORDER
     Route: 064
     Dates: start: 20130113, end: 20131015
  2. THIAMAZOLE [Suspect]
     Indication: HYPERTHYROIDISM
     Route: 064
     Dates: start: 20130113, end: 20130225
  3. THIAMAZOLE [Suspect]
     Indication: HYPERTHYROIDISM
     Route: 064
     Dates: start: 20130225, end: 20130425
  4. QUILONUM [Suspect]
     Indication: PSYCHOTIC DISORDER
     Route: 064
     Dates: start: 20130113, end: 20131015
  5. FOLSAURE [Concomitant]
     Indication: PROPHYLAXIS OF NEURAL TUBE DEFECT
     Route: 064

REACTIONS (3)
  - Large for dates baby [Unknown]
  - Kidney duplex [Not Recovered/Not Resolved]
  - Hypoaldosteronism [Not Recovered/Not Resolved]
